FAERS Safety Report 4284791-9 (Version None)
Quarter: 2004Q1

REPORT INFORMATION
  Report Type: 
  Country: None (occurrence: None)
  Receive Date: 20040202
  Receipt Date: 20040116
  Transmission Date: 20041129
  Serious: Yes (Death, Hospitalization)
  Sender: FDA-Public Use
  Company Number: 04P-055-0246190-00

PATIENT
  Age: 75 Year
  Sex: Male

DRUGS (18)
  1. FENOFIBRATE [Suspect]
     Indication: DIABETES MELLITUS NON-INSULIN-DEPENDENT
     Dosage: 1 IN 1 D, PER ORAL
     Route: 048
     Dates: start: 20000809, end: 20030916
  2. FENOFIBRATE [Suspect]
     Indication: DYSLIPIDAEMIA
     Dosage: 1 IN 1 D, PER ORAL
     Route: 048
     Dates: start: 20000809, end: 20030916
  3. INSULIN HUMAN [Concomitant]
  4. DIPYRIDAMOLE [Concomitant]
  5. CARBAMAZEPINE [Concomitant]
  6. DIXYRAZINE [Concomitant]
  7. BLOCANOL EYE DROPS [Concomitant]
  8. LATANOPROST [Concomitant]
  9. GLYCERYL TRINITRATE [Concomitant]
  10. INSULIN ISOPHANE, HUMAN BIOSYNTHETIC [Concomitant]
  11. LERCANIDIPINE HYDROCHLORIDE [Concomitant]
  12. NAPROXEN [Concomitant]
  13. PREDNISOLONE ACETATE [Concomitant]
  14. METFORMIN HYDROCHLORIDE [Concomitant]
  15. CANDESARTAN CILEXETIL [Concomitant]
  16. BISOPROLOL FUMARATE [Concomitant]
  17. ISOSORBIDE MONONITRATE [Concomitant]
  18. SIMVASTATIN [Concomitant]

REACTIONS (1)
  - CORONARY ARTERY DISEASE [None]
